FAERS Safety Report 21632698 (Version 1)
Quarter: 2022Q4

REPORT INFORMATION
  Report Type: Report from Study
  Country: US (occurrence: US)
  Receive Date: 20221123
  Receipt Date: 20221123
  Transmission Date: 20230113
  Serious: No
  Sender: FDA-Public Use
  Company Number: US-ABBVIE-22K-163-4518866-00

PATIENT
  Sex: Female

DRUGS (1)
  1. HUMIRA [Suspect]
     Active Substance: ADALIMUMAB
     Indication: Hidradenitis
     Dosage: CITRATE FREE
     Route: 058

REACTIONS (8)
  - Abdominal distension [Recovering/Resolving]
  - Headache [Recovering/Resolving]
  - Rash papular [Recovering/Resolving]
  - Chest discomfort [Recovering/Resolving]
  - Rash pruritic [Recovering/Resolving]
  - Pain [Unknown]
  - Seasonal allergy [Recovering/Resolving]
  - Irregular breathing [Unknown]
